FAERS Safety Report 6864723-7 (Version None)
Quarter: 2010Q3

REPORT INFORMATION
  Report Type: 
  Country: None (occurrence: None)
  Receive Date: 20100721
  Receipt Date: 20080402
  Transmission Date: 20110219
  Serious: Yes (Other)
  Sender: FDA-Public Use
  Company Number: US-PFIZER INC-2008030197

PATIENT
  Sex: Female
  Weight: 65.8 kg

DRUGS (7)
  1. CHANTIX [Suspect]
     Indication: SMOKING CESSATION THERAPY
     Dates: start: 20071230, end: 20080101
  2. DAYPRO [Concomitant]
  3. ETANERCEPT [Concomitant]
  4. LIPITOR [Concomitant]
  5. IBANDRONATE SODIUM [Concomitant]
  6. ZYRTEC [Concomitant]
  7. CONTRACEPTIVE, UNSPECIFIED [Concomitant]

REACTIONS (2)
  - ANXIETY [None]
  - INSOMNIA [None]
